FAERS Safety Report 5319016-6 (Version None)
Quarter: 2007Q2

REPORT INFORMATION
  Report Type: 
  Country: None (occurrence: None)
  Receive Date: 20070501
  Receipt Date: 20070312
  Transmission Date: 20071010
  Serious: Yes (Other)
  Sender: FDA-Public Use
  Company Number: A03200702124

PATIENT
  Sex: Female

DRUGS (3)
  1. AMBIEN [Suspect]
     Indication: INSOMNIA
     Dosage: ORAL
     Route: 048
     Dates: start: 20030501, end: 20040101
  2. THEOPHYLLINE [Concomitant]
  3. ALBUTEROL [Concomitant]

REACTIONS (2)
  - AMNESIA [None]
  - SEXUAL ASSAULT VICTIM [None]
